FAERS Safety Report 12301800 (Version 1)
Quarter: 2016Q2

REPORT INFORMATION
  Report Type: Spontaneous
  Country: US (occurrence: US)
  Receive Date: 20160425
  Receipt Date: 20160425
  Transmission Date: 20160815
  Serious: No
  Sender: FDA-Public Use
  Company Number: US-GLAXOSMITHKLINE-US2016047581

PATIENT
  Age: 83 Year
  Sex: Female

DRUGS (2)
  1. ELIQUIS [Concomitant]
     Active Substance: APIXABAN
  2. INCRUSE ELLIPTA [Suspect]
     Active Substance: UMECLIDINIUM BROMIDE
     Indication: DYSPNOEA
     Dosage: 1 PUFF(S) QD
     Route: 055
     Dates: start: 20160308, end: 20160310

REACTIONS (4)
  - Oropharyngeal pain [Recovered/Resolved]
  - Dysphonia [Recovered/Resolved]
  - Dysgeusia [Unknown]
  - Throat irritation [Recovered/Resolved]

NARRATIVE: CASE EVENT DATE: 20160310
